FAERS Safety Report 8901287 (Version 1)
Quarter: 2012Q4

REPORT INFORMATION
  Report Type: 
  Country: US (occurrence: US)
  Receive Date: 20121109
  Receipt Date: 20121109
  Transmission Date: 20130627
  Serious: No
  Sender: FDA-Public Use
  Company Number: US-PFIZER INC-2012276085

PATIENT
  Age: 48 Year
  Sex: Female
  Weight: 116 kg

DRUGS (2)
  1. CHANTIX [Suspect]
     Indication: SMOKING CESSATION THERAPY
     Dosage: 0.5 mg, daily
     Dates: start: 201207, end: 2012
  2. CHANTIX [Suspect]
     Dosage: 1 mg, 2x/day
     Dates: start: 2012

REACTIONS (2)
  - Gastric disorder [Not Recovered/Not Resolved]
  - Rash [Not Recovered/Not Resolved]
